FAERS Safety Report 4508865-X (Version None)
Quarter: 2004Q4

REPORT INFORMATION
  Report Type: 
  Country: None (occurrence: None)
  Receive Date: 20041123
  Receipt Date: 20041111
  Transmission Date: 20050328
  Serious: Yes (Other)
  Sender: FDA-Public Use
  Company Number: US-BRISTOL-MYERS SQUIBB COMPANY-12763801

PATIENT
  Age: 69 Year
  Sex: Male
  Weight: 72 kg

DRUGS (10)
  1. ERBITUX [Suspect]
     Indication: COLON CANCER
     Route: 042
     Dates: start: 20041109, end: 20041109
  2. BENADRYL [Concomitant]
     Indication: PREMEDICATION
     Route: 042
     Dates: start: 20041109, end: 20041109
  3. ANALGESICS [Concomitant]
  4. ASPIRIN [Concomitant]
  5. IRON (FERROUS SULFATE) [Concomitant]
  6. LESCOL [Concomitant]
  7. LOMOTIL [Concomitant]
  8. MECLOFENAMATE [Concomitant]
  9. PLENDIL [Concomitant]
  10. PREDNISONE [Concomitant]

REACTIONS (9)
  - BLOOD PRESSURE DECREASED [None]
  - DIZZINESS [None]
  - ERYTHEMA [None]
  - MUSCLE TWITCHING [None]
  - OXYGEN SATURATION DECREASED [None]
  - PRURITUS [None]
  - PRURITUS GENERALISED [None]
  - RASH [None]
  - TREMOR [None]
